FAERS Safety Report 22168691 (Version 1)
Quarter: 2023Q2

REPORT INFORMATION
  Report Type: Spontaneous
  Country: US (occurrence: US)
  Receive Date: 20230403
  Receipt Date: 20230403
  Transmission Date: 20230722
  Serious: No
  Sender: FDA-Public Use
  Company Number: US-KARYOPHARM-2023KPT001001

PATIENT

DRUGS (15)
  1. XPOVIO [Suspect]
     Active Substance: SELINEXOR
     Indication: Plasma cell myeloma
     Dosage: 60 MG, WEEKLY
     Route: 048
     Dates: start: 202202
  2. ACYCLOVIR [Concomitant]
     Active Substance: ACYCLOVIR
  3. ATORVASTATIN [Concomitant]
     Active Substance: ATORVASTATIN
  4. DEXAMETHASONE [Concomitant]
     Active Substance: DEXAMETHASONE
  5. DICLOFENAC [Concomitant]
     Active Substance: DICLOFENAC
  6. DICYCLOMINE [Concomitant]
     Active Substance: DICYCLOMINE HYDROCHLORIDE
  7. GABAPENTIN [Concomitant]
     Active Substance: GABAPENTIN
  8. KLOR-CON [Concomitant]
     Active Substance: POTASSIUM CHLORIDE
  9. LEVOTHYROXINE [Concomitant]
     Active Substance: LEVOTHYROXINE
  10. OLANZAPINE [Concomitant]
     Active Substance: OLANZAPINE
  11. ONDANSETRON [Concomitant]
     Active Substance: ONDANSETRON
  12. PROCHLORPERAZINE [Concomitant]
     Active Substance: PROCHLORPERAZINE
  13. SANCUSO [Concomitant]
     Active Substance: GRANISETRON
  14. VALACYCLOVIR [Concomitant]
     Active Substance: VALACYCLOVIR HYDROCHLORIDE
  15. VELCADE [Concomitant]
     Active Substance: BORTEZOMIB

REACTIONS (1)
  - Balance disorder [Unknown]

NARRATIVE: CASE EVENT DATE: 20230101
